FAERS Safety Report 4911197-9 (Version None)
Quarter: 2006Q1

REPORT INFORMATION
  Report Type: 
  Country: None (occurrence: None)
  Receive Date: 20060209
  Receipt Date: 20060126
  Transmission Date: 20060701
  Serious: Yes (Life-Threatening)
  Sender: FDA-Public Use
  Company Number: 02100-JPN-05-0508

PATIENT
  Age: 86 Year
  Sex: Female

DRUGS (11)
  1. CILOSTAZOL [Suspect]
     Indication: CEREBRAL INFARCTION
     Dosage: 200 MG ORAL
     Route: 048
     Dates: start: 20050815, end: 20050820
  2. VALPROATE SODIUM [Concomitant]
  3. TELMISTARTAN [Concomitant]
  4. ASPIRIN [Concomitant]
  5. FUROSEMIDE [Concomitant]
  6. URAPIDIL [Concomitant]
  7. FAMOTIDINE [Concomitant]
  8. BENIDIPINE HYDROCHLORIDE [Concomitant]
  9. NICORANDIL [Concomitant]
  10. FLAVOXATE HCL [Concomitant]
  11. INSULIN HUMAN (GENETICAL RECOMBINATION_) [Concomitant]

REACTIONS (7)
  - ACUTE PRERENAL FAILURE [None]
  - ATRIAL FIBRILLATION [None]
  - BLOOD PRESSURE DECREASED [None]
  - CARDIAC FAILURE [None]
  - CYANOSIS [None]
  - DYSPNOEA [None]
  - HEART RATE INCREASED [None]
